FAERS Safety Report 7496180-4 (Version None)
Quarter: 2011Q2

REPORT INFORMATION
  Report Type: 
  Country: None (occurrence: None)
  Receive Date: 20110523
  Receipt Date: 20110510
  Transmission Date: 20111010
  Serious: Yes (Other)
  Sender: FDA-Public Use
  Company Number: PHHY2011US23444

PATIENT
  Sex: Female

DRUGS (6)
  1. GILENYA [Suspect]
     Indication: MULTIPLE SCLEROSIS
     Dosage: 0.5 MG, QD
     Route: 048
     Dates: start: 20110208
  2. AMINOPYRIDINE [Concomitant]
     Dosage: 30 MG, UNK
  3. PROVIGIL [Concomitant]
     Indication: FATIGUE
     Dosage: 200 MG, PRN
  4. ZIMBALTA [Concomitant]
     Indication: PAIN
     Dosage: 60 MG, UNK
  5. AMANTADINE HCL [Concomitant]
     Indication: FATIGUE
     Dosage: 100 MG, PRN
  6. BACLOFEN [Concomitant]
     Indication: MUSCLE SPASTICITY
     Dosage: UNK UKN, UNK

REACTIONS (6)
  - THROAT IRRITATION [None]
  - HYPERSENSITIVITY [None]
  - CONJUNCTIVITIS INFECTIVE [None]
  - NASOPHARYNGITIS [None]
  - DECREASED IMMUNE RESPONSIVENESS [None]
  - COUGH [None]
